FAERS Safety Report 5199311-4 (Version None)
Quarter: 2006Q4

REPORT INFORMATION
  Report Type: 
  Country: None (occurrence: None)
  Receive Date: 20061229
  Receipt Date: 20061219
  Transmission Date: 20070319
  Serious: Yes (Hospitalization)
  Sender: FDA-Public Use
  Company Number: 2006S1011669

PATIENT
  Age: 79 Year
  Sex: Male
  Weight: 81.5 kg

DRUGS (11)
  1. PIROXICAM [Suspect]
     Indication: OSTEOARTHRITIS
     Dosage: 20 MG; QD; PO
     Route: 048
     Dates: start: 19900101
  2. SUNITINIB MALATE (50 MG) [Suspect]
     Indication: RENAL CELL CARCINOMA STAGE UNSPECIFIED
     Dosage: 50 MG; QD; PO
     Route: 048
     Dates: start: 20051220
  3. WARFARIN SODIUM [Suspect]
     Indication: AORTIC VALVE REPLACEMENT
     Dosage: 275 MG; QW; PO
     Route: 048
     Dates: start: 20060628
  4. ATENOLOL (CON.) [Concomitant]
  5. TOLTERODINE L-TARTRATE (CON.) [Concomitant]
  6. TAMSULOSIN HYDROCHLORIDE (CON.) [Concomitant]
  7. MAALOX (CON.) [Concomitant]
  8. HYCOMINE (CON.) [Concomitant]
  9. LEUPRORELIN ACETATE (CON.) [Concomitant]
  10. CELECOXIB (CON.) [Concomitant]
  11. TERAZOSIN HYDROCHLORIDE (CON.) [Concomitant]

REACTIONS (5)
  - ANAL FISSURE [None]
  - DYSGEUSIA [None]
  - FATIGUE [None]
  - HAEMATOCRIT DECREASED [None]
  - RECTAL HAEMORRHAGE [None]
